FAERS Safety Report 9436898 (Version 1)
Quarter: 2013Q3

REPORT INFORMATION
  Report Type: Spontaneous
  Country: US (occurrence: US)
  Receive Date: 20130802
  Receipt Date: 20130802
  Transmission Date: 20140515
  Serious: No
  Sender: FDA-Public Use
  Company Number: US-PFIZER INC-2013225066

PATIENT
  Sex: Female

DRUGS (3)
  1. LYRICA [Suspect]
     Dosage: 75 MG
     Route: 048
     Dates: start: 201301, end: 20130530
  2. LYRICA [Suspect]
     Dosage: 75 MG, 2X/DAY
     Dates: start: 20130727, end: 20130728
  3. FENTANYL [Suspect]
     Dosage: 50 MG
     Route: 062
     Dates: start: 201305, end: 20130715

REACTIONS (6)
  - Dizziness [Unknown]
  - Vertigo [Unknown]
  - Feeling abnormal [Unknown]
  - Activities of daily living impaired [Unknown]
  - Dermatitis allergic [Unknown]
  - General physical health deterioration [Unknown]
